FAERS Safety Report 10219403 (Version 1)
Quarter: 2014Q2

REPORT INFORMATION
  Report Type: Report from Study
  Country: DE (occurrence: DE)
  Receive Date: 20140605
  Receipt Date: 20140605
  Transmission Date: 20141212
  Serious: Yes (Hospitalization)
  Sender: FDA-Public Use
  Company Number: PHHO2014DE007996

PATIENT
  Sex: 0

DRUGS (7)
  1. BLINDED BKM120 [Suspect]
     Indication: SQUAMOUS CELL CARCINOMA
     Dosage: CODE NOT BROKEN
     Route: 048
     Dates: start: 20140522, end: 20140530
  2. BLINDED NO TREATMENT RECEIVED [Suspect]
     Indication: SQUAMOUS CELL CARCINOMA
     Dosage: CODE NOT BROKEN
     Route: 048
     Dates: start: 20140522, end: 20140530
  3. BLINDED PLACEBO [Suspect]
     Indication: SQUAMOUS CELL CARCINOMA
     Dosage: CODE NOT BROKEN
     Route: 048
     Dates: start: 20140522, end: 20140530
  4. CLOPIDOGREL SANDOZ [Suspect]
     Dosage: 75 MG, QD
     Dates: start: 20120615
  5. ACETYLSALICYLIC ACID SANDOZ [Suspect]
     Dosage: 100 MG, QD
     Dates: start: 20120615
  6. PANTOPRAZOL [Concomitant]
     Dosage: 40 MG, QD
     Dates: start: 20120615
  7. MAGNESIUM VERLA                    /00648601/ [Concomitant]
     Indication: MYALGIA
     Dosage: 5 MMOL
     Dates: start: 20130808

REACTIONS (1)
  - Gastrointestinal haemorrhage [Recovering/Resolving]
